FAERS Safety Report 9182988 (Version 1)
Quarter: 2013Q1

REPORT INFORMATION
  Report Type: Spontaneous
  Country: US (occurrence: US)
  Receive Date: 20130322
  Receipt Date: 20130322
  Transmission Date: 20140127
  Serious: Yes (Life-Threatening, Hospitalization)
  Sender: FDA-Public Use
  Company Number: US-BRISTOL-MYERS SQUIBB COMPANY-16970170

PATIENT
  Age: 59 Year
  Sex: Male
  Weight: 79.36 kg

DRUGS (2)
  1. ERBITUX [Suspect]
     Indication: HEAD AND NECK CANCER
     Dates: start: 20120820, end: 20120820
  2. BENADRYL [Concomitant]
     Indication: PREMEDICATION

REACTIONS (1)
  - Anaphylactic shock [Recovering/Resolving]
